FAERS Safety Report 4758519-X (Version None)
Quarter: 2005Q3

REPORT INFORMATION
  Report Type: 
  Country: None (occurrence: None)
  Receive Date: 20050826
  Receipt Date: 20050816
  Transmission Date: 20060218
  Serious: Yes (Hospitalization)
  Sender: FDA-Public Use
  Company Number: 2005-08-1177

PATIENT
  Age: 18 Year
  Sex: Female
  Weight: 60 kg

DRUGS (1)
  1. CLARITIN-D [Suspect]
     Indication: RHINITIS ALLERGIC
     Dosage: 1 Q8H ORAL
     Route: 048
     Dates: start: 20050812, end: 20050814

REACTIONS (1)
  - CONVULSION [None]
